FAERS Safety Report 9340355 (Version 3)
Quarter: 2013Q3

REPORT INFORMATION
  Report Type: Spontaneous
  Country: JP (occurrence: JP)
  Receive Date: 20130610
  Receipt Date: 20130924
  Transmission Date: 20140515
  Serious: No
  Sender: FDA-Public Use
  Company Number: JP-AMGEN-JPNSP2013040605

PATIENT
  Age: 63 Year
  Sex: Male
  Weight: 77 kg

DRUGS (84)
  1. GRAN [Suspect]
     Indication: ACUTE MYELOID LEUKAEMIA
     Dosage: UNK
     Route: 065
     Dates: start: 20130528, end: 20130529
  2. GRAN [Suspect]
     Dosage: 300 MUG, UNK
     Route: 065
     Dates: start: 20130422, end: 20130422
  3. TAKEPRON [Concomitant]
     Indication: GASTRIC ULCER
     Dosage: 15 MG, UNK
     Route: 048
     Dates: start: 20130331, end: 20130423
  4. MYSLEE [Concomitant]
     Indication: INSOMNIA
     Dosage: 10 MG, UNK
     Route: 048
     Dates: start: 20130331, end: 20130423
  5. MAGMITT [Concomitant]
     Dosage: 990 MG, UNK
     Route: 048
     Dates: start: 20130331, end: 20130403
  6. MAGMITT [Concomitant]
     Dosage: 2970 MG, UNK
     Route: 048
     Dates: start: 20130404, end: 20130404
  7. MAGMITT [Concomitant]
     Dosage: 1980 MG, UNK
     Route: 048
     Dates: start: 20130405, end: 20130409
  8. MAGMITT [Concomitant]
     Dosage: 3960 MG, UNK
     Route: 048
     Dates: start: 20130410, end: 20130410
  9. MAGMITT [Concomitant]
     Dosage: 1980 MG, UNK
     Route: 048
     Dates: start: 20130411, end: 20130416
  10. MIYA BM [Concomitant]
     Dosage: 3 G, UNK
     Route: 048
     Dates: start: 20130331, end: 20130423
  11. LASIX                              /00032601/ [Concomitant]
     Dosage: 20 MG, UNK
     Route: 048
     Dates: start: 20130331, end: 20130423
  12. LENDORMIN DAINIPPO [Concomitant]
     Indication: INSOMNIA
     Dosage: 0.25 MG, UNK
     Route: 048
     Dates: start: 20130331, end: 20130423
  13. REBAMIPIDE [Concomitant]
     Indication: GASTRIC ULCER
     Dosage: 300 MG, UNK
     Route: 048
     Dates: start: 20130331, end: 20130423
  14. CRAVIT [Concomitant]
     Indication: GASTRIC ULCER
     Dosage: 500 MG, UNK
     Route: 048
     Dates: start: 20130331, end: 20130423
  15. ARCRANE [Concomitant]
     Indication: GASTRIC ULCER
     Dosage: 120 ML, UNK
     Route: 048
     Dates: start: 20130331, end: 20130410
  16. ARCRANE [Concomitant]
     Dosage: 240 ML, UNK
     Route: 048
     Dates: start: 20130411, end: 20130418
  17. ARCRANE [Concomitant]
     Dosage: 120 ML, UNK
     Route: 048
     Dates: start: 20130419, end: 20130423
  18. BAKTAR [Concomitant]
     Indication: PNEUMOCYSTIS JIROVECII PNEUMONIA
     Dosage: 4 DF, UNK
     Route: 048
     Dates: start: 20130331, end: 20130423
  19. PURSENNID                          /00571902/ [Concomitant]
     Indication: CONSTIPATION
     Dosage: 24 MG, UNK
     Route: 048
     Dates: start: 20130331, end: 20130401
  20. PURSENNID                          /00571902/ [Concomitant]
     Dosage: 36 MG, UNK
     Route: 048
     Dates: start: 20130402, end: 20130423
  21. FLUCONAZOLE [Concomitant]
     Indication: FUNGAL INFECTION
     Dosage: 100 MG, UNK
     Route: 048
     Dates: start: 20130331, end: 20130423
  22. XYLOCAINE                          /00033401/ [Concomitant]
     Dosage: 20 ML, UNK
     Route: 048
     Dates: start: 20130405, end: 20130405
  23. XYLOCAINE                          /00033401/ [Concomitant]
     Dosage: 20 ML, UNK
     Route: 048
     Dates: start: 20130411, end: 20130412
  24. XYLOCAINE                          /00033401/ [Concomitant]
     Dosage: 20 ML, UNK
     Route: 048
     Dates: start: 20130418, end: 20130418
  25. JANUVIA [Concomitant]
     Indication: DIABETES MELLITUS
     Dosage: 50 MG, UNK
     Route: 048
     Dates: start: 20130331, end: 20130423
  26. ISOTONIC SODIUM CHLORIDE SOLUTION [Concomitant]
     Dosage: 50 ML, UNK
     Route: 065
     Dates: start: 20130402, end: 20130408
  27. ISOTONIC SODIUM CHLORIDE SOLUTION [Concomitant]
     Dosage: 40 ML, UNK
     Route: 065
     Dates: start: 20130401, end: 20130401
  28. ISOTONIC SODIUM CHLORIDE SOLUTION [Concomitant]
     Dosage: 20 ML, UNK
     Route: 065
     Dates: start: 20130402, end: 20130402
  29. ISOTONIC SODIUM CHLORIDE SOLUTION [Concomitant]
     Dosage: 40 ML, UNK
     Route: 065
     Dates: start: 20130403, end: 20130403
  30. ISOTONIC SODIUM CHLORIDE SOLUTION [Concomitant]
     Dosage: 40 ML, UNK
     Route: 065
     Dates: start: 20130406, end: 20130406
  31. ISOTONIC SODIUM CHLORIDE SOLUTION [Concomitant]
     Dosage: 20 ML, UNK
     Route: 065
     Dates: start: 20130408, end: 20130408
  32. ISOTONIC SODIUM CHLORIDE SOLUTION [Concomitant]
     Dosage: 40 ML, UNK
     Route: 065
     Dates: start: 20130409, end: 20130409
  33. ISOTONIC SODIUM CHLORIDE SOLUTION [Concomitant]
     Dosage: 40 ML, UNK
     Route: 065
     Dates: start: 20130411, end: 20130411
  34. ISOTONIC SODIUM CHLORIDE SOLUTION [Concomitant]
     Dosage: 40 ML, UNK
     Route: 065
     Dates: start: 20130413, end: 20130413
  35. ISOTONIC SODIUM CHLORIDE SOLUTION [Concomitant]
     Dosage: 40 ML, UNK
     Route: 065
     Dates: start: 20130415, end: 20130415
  36. ISOTONIC SODIUM CHLORIDE SOLUTION [Concomitant]
     Dosage: 60 ML, UNK
     Route: 065
     Dates: start: 20130416, end: 20130416
  37. ISOTONIC SODIUM CHLORIDE SOLUTION [Concomitant]
     Dosage: 40 ML, UNK
     Route: 065
     Dates: start: 20130417, end: 20130417
  38. ISOTONIC SODIUM CHLORIDE SOLUTION [Concomitant]
     Dosage: 20 ML, UNK
     Route: 065
     Dates: start: 20130419, end: 20130419
  39. ISOTONIC SODIUM CHLORIDE SOLUTION [Concomitant]
     Dosage: 40 ML, UNK
     Route: 065
     Dates: start: 20130422, end: 20130423
  40. ISOTONIC SODIUM CHLORIDE SOLUTION [Concomitant]
     Dosage: 1 DF, UNK
     Route: 065
     Dates: start: 20130401, end: 20130408
  41. ISOTONIC SODIUM CHLORIDE SOLUTION [Concomitant]
     Dosage: 1 DF, UNK
     Route: 065
     Dates: start: 20130416, end: 20130416
  42. ISOTONIC SODIUM CHLORIDE SOLUTION [Concomitant]
     Dosage: 1 DF, UNK
     Route: 065
     Dates: start: 20130422, end: 20130422
  43. NEUTROGIN [Concomitant]
     Dosage: 250 MUG, UNK
     Route: 065
     Dates: start: 20130401, end: 20130401
  44. NEUTROGIN [Concomitant]
     Dosage: 250 MUG, UNK
     Route: 065
     Dates: start: 20130416, end: 20130416
  45. PEMIROC [Concomitant]
     Dosage: 1 DF, UNK
     Route: 065
     Dates: start: 20130401, end: 20130401
  46. PEMIROC [Concomitant]
     Dosage: 1 DF, UNK
     Route: 065
     Dates: start: 20130331, end: 20130401
  47. PEMIROC [Concomitant]
     Dosage: 2 DF, UNK
     Route: 065
     Dates: start: 20130402, end: 20130403
  48. PEMIROC [Concomitant]
     Dosage: 1 DF, UNK
     Route: 065
     Dates: start: 20130404, end: 20130404
  49. PEMIROC [Concomitant]
     Dosage: 2 DF, UNK
     Route: 065
     Dates: start: 20130405, end: 20130406
  50. PEMIROC [Concomitant]
     Dosage: 1 DF, UNK
     Route: 065
     Dates: start: 20130407, end: 20130407
  51. PEMIROC [Concomitant]
     Dosage: 2 DF, UNK
     Route: 065
     Dates: start: 20130408, end: 20130409
  52. PEMIROC [Concomitant]
     Dosage: 1 DF, UNK
     Route: 065
     Dates: start: 20130410, end: 20130410
  53. PEMIROC [Concomitant]
     Dosage: 2 DF, UNK
     Route: 065
     Dates: start: 20130411, end: 20130411
  54. PEMIROC [Concomitant]
     Dosage: 1 DF, UNK
     Route: 065
     Dates: start: 20130412, end: 20130412
  55. PEMIROC [Concomitant]
     Dosage: 2 DF, UNK
     Route: 065
     Dates: start: 20130413, end: 20130413
  56. PEMIROC [Concomitant]
     Dosage: 1 DF, UNK
     Route: 065
     Dates: start: 20130414, end: 20130414
  57. PEMIROC [Concomitant]
     Dosage: 2 DF, UNK
     Route: 065
     Dates: start: 20130415, end: 20130415
  58. PEMIROC [Concomitant]
     Dosage: 1 DF, UNK
     Route: 065
     Dates: start: 20130416, end: 20130416
  59. PEMIROC [Concomitant]
     Dosage: 2 DF, UNK
     Route: 065
     Dates: start: 20130417, end: 20130417
  60. PEMIROC [Concomitant]
     Dosage: 1 DF, UNK
     Route: 065
     Dates: start: 20130418, end: 20130418
  61. PEMIROC [Concomitant]
     Dosage: 2 DF, UNK
     Route: 065
     Dates: start: 20130419, end: 20130419
  62. PEMIROC [Concomitant]
     Dosage: 1 DF, UNK
     Route: 065
     Dates: start: 20130420, end: 20130422
  63. PEMIROC [Concomitant]
     Dosage: 2 DF, UNK
     Route: 065
     Dates: start: 20130423, end: 20130423
  64. GRANISETRON [Concomitant]
     Dosage: 1 DF, UNK
     Route: 065
     Dates: start: 20130402, end: 20130408
  65. SOLU-CORTEF [Concomitant]
     Dosage: 100 MG, UNK
     Route: 065
     Dates: start: 20130401, end: 20130402
  66. SOLU-CORTEF [Concomitant]
     Dosage: 200 MG, UNK
     Route: 065
     Dates: start: 20130403, end: 20130403
  67. SOLU-CORTEF [Concomitant]
     Dosage: 100 MG, UNK
     Route: 065
     Dates: start: 20130404, end: 20130405
  68. SOLU-CORTEF [Concomitant]
     Dosage: 200 MG, UNK
     Route: 065
     Dates: start: 20130406, end: 20130406
  69. SOLU-CORTEF [Concomitant]
     Dosage: 100 MG, UNK
     Route: 065
     Dates: start: 20130407, end: 20130409
  70. SOLU-CORTEF [Concomitant]
     Dosage: 100 MG, UNK
     Route: 065
     Dates: start: 20130411, end: 20130411
  71. SOLU-CORTEF [Concomitant]
     Dosage: 100 MG, UNK
     Route: 065
     Dates: start: 20130413, end: 20130413
  72. SOLU-CORTEF [Concomitant]
     Dosage: 100 MG, UNK
     Route: 065
     Dates: start: 20130415, end: 20130415
  73. SOLU-CORTEF [Concomitant]
     Dosage: 300 MG, UNK
     Route: 065
     Dates: start: 20130416, end: 20130416
  74. SOLU-CORTEF [Concomitant]
     Dosage: 100 MG, UNK
     Route: 065
     Dates: start: 20130417, end: 20130417
  75. SOLU-CORTEF [Concomitant]
     Dosage: 100 MG, UNK
     Route: 065
     Dates: start: 20130419, end: 20130419
  76. SOLU-CORTEF [Concomitant]
     Dosage: 200 MG, UNK
     Route: 065
     Dates: start: 20130422, end: 20130422
  77. SOLU-CORTEF [Concomitant]
     Dosage: 100 MG, UNK
     Route: 065
     Dates: start: 20130423, end: 20130423
  78. HUMULIN R [Concomitant]
     Dosage: 16 DF, UNK
     Route: 065
     Dates: start: 20130331, end: 20130423
  79. VIDAZA [Concomitant]
     Dosage: 130 MG, UNK
     Route: 065
     Dates: start: 20130402, end: 20130408
  80. LOXOPROFEN [Concomitant]
     Dosage: 60 MG, UNK
     Route: 048
     Dates: start: 20130408, end: 20130414
  81. LOXOPROFEN [Concomitant]
     Dosage: 60 MG, UNK
     Route: 048
     Dates: start: 20130423, end: 20130423
  82. STARASID [Concomitant]
     Indication: ACUTE MYELOID LEUKAEMIA
     Dosage: 1 DF, UNK
     Route: 048
     Dates: start: 20130422, end: 20130423
  83. ZOFRAN                             /00955301/ [Concomitant]
     Indication: ACUTE MYELOID LEUKAEMIA
     Dosage: 4 MG, UNK
     Route: 048
     Dates: start: 20130422, end: 20130423
  84. SOLDEM 3A [Concomitant]
     Dosage: 2 DF, UNK
     Route: 065
     Dates: start: 20130419, end: 20130423

REACTIONS (1)
  - Drug effect incomplete [Recovered/Resolved]
